FAERS Safety Report 19232081 (Version 1)
Quarter: 2021Q2

REPORT INFORMATION
  Report Type: Spontaneous
  Country: CN (occurrence: CN)
  Receive Date: 20210507
  Receipt Date: 20210507
  Transmission Date: 20210717
  Serious: Yes (Hospitalization, Other)
  Sender: FDA-Public Use
  Company Number: NVSC2021CN096681

PATIENT
  Age: 33 Year
  Sex: Female
  Weight: 62 kg

DRUGS (12)
  1. TYKERB [Suspect]
     Active Substance: LAPATINIB DITOSYLATE
     Indication: BREAST CANCER METASTATIC
     Dosage: 1250 MG, QD
     Route: 048
     Dates: start: 20201120, end: 20201213
  2. TYKERB [Suspect]
     Active Substance: LAPATINIB DITOSYLATE
     Dosage: 1250 MG, QD
     Route: 048
     Dates: start: 20201215, end: 20210106
  3. CAPECITABINE. [Concomitant]
     Active Substance: CAPECITABINE
     Indication: BREAST CANCER METASTATIC
     Dosage: 1600 MG, BID (D1?D14)
     Route: 048
     Dates: start: 20201120, end: 20201203
  4. TYKERB [Suspect]
     Active Substance: LAPATINIB DITOSYLATE
     Dosage: 1250 MG, QD
     Route: 048
     Dates: start: 20210108, end: 20210129
  5. CAPECITABINE. [Concomitant]
     Active Substance: CAPECITABINE
     Dosage: 1600 MG, BID (D1?D14)
     Route: 048
     Dates: start: 20210112, end: 20210130
  6. CAPECITABINE. [Concomitant]
     Active Substance: CAPECITABINE
     Dosage: 1600 MG, BID (D1?D14)
     Route: 048
     Dates: start: 20210304, end: 20210317
  7. TYKERB [Suspect]
     Active Substance: LAPATINIB DITOSYLATE
     Dosage: 1250 MG, QD
     Route: 048
     Dates: start: 20210325, end: 20210415
  8. CAPECITABINE. [Concomitant]
     Active Substance: CAPECITABINE
     Dosage: 1600 MG, BID (D1?D14)
     Route: 048
     Dates: start: 20201215, end: 20201228
  9. CAPECITABINE. [Concomitant]
     Active Substance: CAPECITABINE
     Dosage: 1600 MG, BID (D1?D14)
     Route: 048
     Dates: start: 20210325, end: 20210407
  10. TYKERB [Suspect]
     Active Substance: LAPATINIB DITOSYLATE
     Dosage: 1250 MG, QD
     Route: 048
     Dates: start: 20210130, end: 20210219
  11. TYKERB [Suspect]
     Active Substance: LAPATINIB DITOSYLATE
     Dosage: 1250 MG, QD
     Route: 048
     Dates: start: 20210304, end: 20210324
  12. CAPECITABINE. [Concomitant]
     Active Substance: CAPECITABINE
     Dosage: 1600 MG, BID (D1?D14)
     Route: 048
     Dates: start: 20210108, end: 20210121

REACTIONS (5)
  - Malignant neoplasm progression [Unknown]
  - Pneumonitis [Not Recovered/Not Resolved]
  - Pericardial effusion [Unknown]
  - Pleural effusion [Unknown]
  - Breast cancer metastatic [Unknown]

NARRATIVE: CASE EVENT DATE: 20210420
